FAERS Safety Report 7946727-6 (Version None)
Quarter: 2011Q4

REPORT INFORMATION
  Report Type: 
  Country: None (occurrence: None)
  Receive Date: 20111129
  Receipt Date: 20111117
  Transmission Date: 20120403
  Serious: Yes (Other)
  Sender: FDA-Public Use
  Company Number: US-ELI_LILLY_AND_COMPANY-US201110005384

PATIENT
  Sex: Female

DRUGS (22)
  1. LOVAZA [Concomitant]
  2. VITAMIN D [Concomitant]
  3. CALCIUM CARBONATE [Concomitant]
  4. ALBUTEROL [Concomitant]
  5. FORTEO [Suspect]
     Dosage: 20 UG, QD
  6. FORTEO [Suspect]
     Dosage: 20 UG, QD
  7. ASPIRIN [Concomitant]
     Dosage: UNK, QD
  8. WELLBUTRIN [Concomitant]
     Dosage: 300 MG, QD
  9. FORTEO [Suspect]
     Indication: OSTEOPOROSIS
     Dosage: UNK, QD
     Route: 058
  10. CELEBREX [Concomitant]
  11. HYDROCODONE [Concomitant]
  12. LAXATIVES [Concomitant]
  13. LOVASTATIN [Concomitant]
     Dosage: 10 MG, QD
  14. NITROSTAT [Concomitant]
     Dosage: .04 MG, PRN
  15. ADVAIR DISKUS 100/50 [Concomitant]
  16. LISINOPRIL [Concomitant]
  17. NEXIUM [Concomitant]
  18. IBUPROFEN [Concomitant]
  19. ORPHENADRINE CITRATE [Concomitant]
  20. FORTEO [Suspect]
     Dosage: 20 UG, QD
  21. SERTRALINE HYDROCHLORIDE [Concomitant]
     Dosage: 25 MG, QD
  22. ROPINIROLE HYDROCHLORIDE [Concomitant]
     Dosage: 0.5 MG, QD

REACTIONS (16)
  - BALANCE DISORDER [None]
  - TREMOR [None]
  - INTERVERTEBRAL DISC PROTRUSION [None]
  - OPTIC ATROPHY [None]
  - DRUG DOSE OMISSION [None]
  - SPINAL COLUMN STENOSIS [None]
  - DIZZINESS [None]
  - SENSATION OF PRESSURE [None]
  - SCIATICA [None]
  - FEAR [None]
  - TOOTH INFECTION [None]
  - JAW DISORDER [None]
  - DRUG INEFFECTIVE [None]
  - SPONDYLOARTHROPATHY [None]
  - TINNITUS [None]
  - HEADACHE [None]
